FAERS Safety Report 6837112-9 (Version None)
Quarter: 2010Q3

REPORT INFORMATION
  Report Type: 
  Country: None (occurrence: None)
  Receive Date: 20100713
  Receipt Date: 20070615
  Transmission Date: 20110219
  Serious: No
  Sender: FDA-Public Use
  Company Number: US-PFIZER INC-2007036621

PATIENT
  Age: 44 Year
  Sex: Female
  Weight: 71.8 kg

DRUGS (3)
  1. CHANTIX [Suspect]
     Indication: SMOKING CESSATION THERAPY
     Dosage: EVERY DAY
     Route: 048
     Dates: start: 20070402, end: 20070428
  2. HERBAL PREPARATION [Suspect]
     Indication: ANXIETY
     Dates: start: 20070401, end: 20070428
  3. ALL OTHER NON-THERAPEUTIC PRODUCTS [Suspect]
     Indication: ANXIETY
     Dates: start: 20070401, end: 20070428

REACTIONS (6)
  - AFFECT LABILITY [None]
  - AGITATION [None]
  - ANXIETY [None]
  - ASTHENIA [None]
  - CHEST PAIN [None]
  - EMOTIONAL DISTRESS [None]
